FAERS Safety Report 20723641 (Version 1)
Quarter: 2022Q2

REPORT INFORMATION
  Report Type: Report from Study
  Country: US (occurrence: US)
  Receive Date: 20220419
  Receipt Date: 20220419
  Transmission Date: 20220721
  Serious: Yes (Hospitalization)
  Sender: FDA-Public Use
  Company Number: US-EXELIXIS-CABO-22051036

PATIENT
  Age: 64 Year
  Sex: Male
  Weight: 95.238 kg

DRUGS (9)
  1. CABOMETYX [Suspect]
     Active Substance: CABOZANTINIB S-MALATE
     Indication: Renal cancer
     Dosage: 60 MG, QD
     Route: 048
     Dates: start: 202111
  2. AMIODARONE HYDROCHLORIDE [Concomitant]
     Active Substance: AMIODARONE HYDROCHLORIDE
  3. ZINC [Concomitant]
     Active Substance: ZINC
  4. VITAMIN D [Concomitant]
     Active Substance: VITAMIN D NOS
  5. VITAMINS [Concomitant]
     Active Substance: VITAMINS
  6. DEXAMETHASONE [Concomitant]
     Active Substance: DEXAMETHASONE
  7. ELIQUIS [Concomitant]
     Active Substance: APIXABAN
  8. IRON [Concomitant]
     Active Substance: IRON
  9. PANTOPRAZOLE SODIUM [Concomitant]
     Active Substance: PANTOPRAZOLE SODIUM

REACTIONS (2)
  - Atrial fibrillation [Recovering/Resolving]
  - Fatigue [Unknown]

NARRATIVE: CASE EVENT DATE: 20220401
